FAERS Safety Report 12395130 (Version 3)
Quarter: 2016Q4

REPORT INFORMATION
  Report Type: Spontaneous
  Country: US (occurrence: US)
  Receive Date: 20160523
  Receipt Date: 20161011
  Transmission Date: 20170207
  Serious: No
  Sender: FDA-Public Use
  Company Number: US-TEVA-661061USA

PATIENT
  Sex: Female

DRUGS (4)
  1. VITAMIN D [Concomitant]
     Active Substance: CHOLECALCIFEROL
  2. FISH OIL [Concomitant]
     Active Substance: FISH OIL
  3. COPAXONE [Suspect]
     Active Substance: GLATIRAMER ACETATE
     Indication: MULTIPLE SCLEROSIS
     Route: 058
     Dates: start: 2014, end: 2016
  4. GILENYA [Concomitant]
     Active Substance: FINGOLIMOD HYDROCHLORIDE

REACTIONS (4)
  - Urticaria [Recovered/Resolved]
  - Injection site reaction [Recovered/Resolved]
  - Drug hypersensitivity [Recovered/Resolved]
  - Injection site bruising [Recovered/Resolved]
